FAERS Safety Report 23327350 (Version 3)
Quarter: 2024Q2

REPORT INFORMATION
  Report Type: Report from Study
  Country: US (occurrence: US)
  Receive Date: 20231221
  Receipt Date: 20240419
  Transmission Date: 20240715
  Serious: Yes (Other)
  Sender: FDA-Public Use
  Company Number: US-TAKEDA-2023TUS121276

PATIENT
  Sex: Female

DRUGS (3)
  1. FRUQUINTINIB [Suspect]
     Active Substance: FRUQUINTINIB
     Indication: Colon cancer
     Dosage: 5 MILLIGRAM, QD
     Route: 048
     Dates: start: 20231127, end: 20231210
  2. FRUQUINTINIB [Suspect]
     Active Substance: FRUQUINTINIB
     Dosage: 4 MILLIGRAM
     Route: 048
  3. FRUQUINTINIB [Suspect]
     Active Substance: FRUQUINTINIB
     Dosage: 3 MILLIGRAM, QD
     Route: 048

REACTIONS (7)
  - Hypersomnia [Recovered/Resolved]
  - Mobility decreased [Unknown]
  - Lip scab [Not Recovered/Not Resolved]
  - Feeling abnormal [Recovered/Resolved]
  - Blood pressure increased [Recovering/Resolving]
  - Asthenia [Unknown]
  - Product dose omission issue [Recovered/Resolved]
